FAERS Safety Report 6085617-3 (Version None)
Quarter: 2009Q1

REPORT INFORMATION
  Report Type: 
  Country: None (occurrence: None)
  Receive Date: 20090220
  Receipt Date: 20090212
  Transmission Date: 20090719
  Serious: Yes (Hospitalization)
  Sender: FDA-Public Use
  Company Number: ZA-JNJFOC-20090202509

PATIENT
  Age: 2 Decade
  Sex: Female
  Weight: 54 kg

DRUGS (5)
  1. CONCERTA [Suspect]
     Indication: ATTENTION DEFICIT/HYPERACTIVITY DISORDER
     Route: 065
  2. PHOLTEX [Concomitant]
     Indication: COUGH
     Route: 048
  3. CODEF [Concomitant]
     Indication: PRODUCTIVE COUGH
     Route: 048
  4. ALVESCO [Concomitant]
     Indication: ASTHMA
     Route: 045
  5. LETHYL [Concomitant]
     Indication: COUGH
     Route: 065

REACTIONS (1)
  - BRONCHITIS [None]
